FAERS Safety Report 5662633-4 (Version None)
Quarter: 2008Q1

REPORT INFORMATION
  Report Type: 
  Country: None (occurrence: None)
  Receive Date: 20080313
  Receipt Date: 20080304
  Transmission Date: 20080703
  Serious: Yes (Other)
  Sender: FDA-Public Use
  Company Number: US-ROCHE-546977

PATIENT
  Age: 32 Year
  Sex: Male
  Weight: 60 kg

DRUGS (5)
  1. ACCUTANE [Suspect]
     Indication: DRUG USE FOR UNKNOWN INDICATION
     Dosage: THE PATIENT WAS DISPENSED ACCUTANE 20 MG CAPSULE ON 04 JANUARY 2008.
     Route: 065
     Dates: end: 20080201
  2. CLARAVIS [Suspect]
     Indication: DRUG USE FOR UNKNOWN INDICATION
     Dosage: THE PATIENT WAS DISPENSED CLARAVIS 20 MG CAPSULE ON 5 DECEMBER 2007
     Route: 065
  3. AMNESTEEM [Suspect]
     Indication: DRUG USE FOR UNKNOWN INDICATION
     Dosage: THE PATIENT WAS DISPENSED AMNESTEEM 40 MG CAPSULE ON 30 OCTOBER 2006 AND 7 DECEMBER 2006.
     Route: 065
  4. AMNESTEEM [Suspect]
     Dosage: THE PATIENT WAS DISPENSED AMNESTEEM 20 MG CAPSULE ON 2 AUGUST 2006, 5 SEPTEMBER 2006 AND 10 OCTOBER+
     Route: 065
  5. AMNESTEEM [Suspect]
     Dosage: THE PATIENT WAS DISPENSED AMNESTEEM 40MG ON 3 JULY 2006.
     Route: 065

REACTIONS (1)
  - OPTIC NERVE DISORDER [None]
